FAERS Safety Report 7642091-0 (Version None)
Quarter: 2011Q3

REPORT INFORMATION
  Report Type: 
  Country: None (occurrence: None)
  Receive Date: 20110728
  Receipt Date: 20110719
  Transmission Date: 20111222
  Serious: Yes (Other)
  Sender: FDA-Public Use
  Company Number: US-ELI_LILLY_AND_COMPANY-US201107006584

PATIENT
  Age: 46 Year
  Sex: Male

DRUGS (2)
  1. EFFIENT [Suspect]
     Indication: PERCUTANEOUS CORONARY INTERVENTION
     Dosage: 10 MG, QD
     Dates: start: 20101101, end: 20110716
  2. ASPIRIN [Concomitant]
     Dosage: 325 MG, QD

REACTIONS (1)
  - CORONARY ARTERIAL STENT INSERTION [None]
